FAERS Safety Report 5258084-7 (Version None)
Quarter: 2007Q1

REPORT INFORMATION
  Report Type: 
  Country: None (occurrence: None)
  Receive Date: 20070307
  Receipt Date: 20070223
  Transmission Date: 20070707
  Serious: Yes (Other)
  Sender: FDA-Public Use
  Company Number: US-SHR-US-2007-003608

PATIENT
  Age: 38 Year
  Sex: Female
  Weight: 61.224 kg

DRUGS (20)
  1. BETASERON [Suspect]
     Indication: RELAPSING-REMITTING MULTIPLE SCLEROSIS
     Dosage: 8 MIU, EVERY 2D
     Route: 058
     Dates: start: 20051017, end: 20070117
  2. BETASERON [Suspect]
     Dosage: 8 MIU, EVERY 2D
     Route: 058
     Dates: start: 20010101
  3. VESACARE [Concomitant]
     Dosage: 20 MG, BED T.
  4. ADDERALL XR 10 [Concomitant]
     Dosage: 20 MG/D, UNK
     Route: 048
  5. ADDERALL 10 [Concomitant]
     Dosage: 10 MG, 2X/DAY
     Route: 048
  6. CELEXA [Concomitant]
     Dosage: 20 MG/D, UNK
     Route: 048
  7. BACLOFEN [Concomitant]
     Dosage: 10 MG, 4X/DAY
     Route: 048
  8. TIZANIDINE HCL [Concomitant]
     Dosage: 6 MG, BED T.
     Route: 048
  9. AMANTADINE HCL [Concomitant]
     Dosage: 100 MG, 2X/DAY
     Route: 048
  10. TRAMADOL HCL [Concomitant]
     Dosage: 50 MG, 4X/DAY OR PRN.
  11. ACYCLOVIR [Concomitant]
     Dosage: 200 MG, 3X/DAY
     Route: 048
  12. PROPRANOLOL HYDROCHLORIDE [Concomitant]
     Indication: MIGRAINE
     Dosage: 20 MG, 2X/DAY
  13. ZONEGRAN [Concomitant]
     Indication: MIGRAINE
     Dosage: 100 MG, 3X/DAY
     Route: 048
  14. DIAZEPAM [Concomitant]
     Dosage: 5 MG, 2X/DAY
     Route: 048
  15. CYTOMEL [Concomitant]
     Dosage: 5 A?G, 2X/DAY
     Route: 048
  16. VITAMIN A [Concomitant]
     Dosage: 50000 IU, 1X/WEEK
  17. SALEX [Concomitant]
  18. ZOVIRAX [Concomitant]
  19. FLUCONAZOLE [Concomitant]
     Dosage: 150 MG, 1 DOSE
     Route: 048
     Dates: start: 20070108, end: 20070108
  20. MONOSTAT [Concomitant]

REACTIONS (10)
  - BONE MARROW DISORDER [None]
  - CHOKING SENSATION [None]
  - HYPOAESTHESIA [None]
  - INTERVERTEBRAL DISC DEGENERATION [None]
  - LIVEDO RETICULARIS [None]
  - MIGRAINE [None]
  - PAIN [None]
  - SYSTEMIC LUPUS ERYTHEMATOSUS [None]
  - THYROID DISORDER [None]
  - VITAMIN D DECREASED [None]
